FAERS Safety Report 4917114-X (Version None)
Quarter: 2006Q1

REPORT INFORMATION
  Report Type: 
  Country: None (occurrence: None)
  Receive Date: 20060221
  Receipt Date: 20060209
  Transmission Date: 20060701
  Serious: Yes (Death)
  Sender: FDA-Public Use
  Company Number: JP-BRISTOL-MYERS SQUIBB COMPANY-13283213

PATIENT
  Age: 38 Week
  Sex: Female

DRUGS (2)
  1. ENDOXAN [Suspect]
     Indication: NEUROBLASTOMA
     Route: 042
  2. VINCRISTINE [Suspect]
     Indication: NEUROBLASTOMA
     Route: 042

REACTIONS (2)
  - FUNGAL INFECTION [None]
  - RENAL FAILURE [None]
